FAERS Safety Report 7355874-1 (Version None)
Quarter: 2011Q1

REPORT INFORMATION
  Report Type: 
  Country: None (occurrence: None)
  Receive Date: 20110316
  Receipt Date: 20110302
  Transmission Date: 20110831
  Serious: Yes (Other)
  Sender: FDA-Public Use
  Company Number: MX-TYCO HEALTHCARE/MALLINCKRODT-T201100167

PATIENT
  Age: 37 Year
  Sex: Female

DRUGS (1)
  1. OPTIRAY 350 [Suspect]
     Dosage: UNK, SINGLE
     Route: 042
     Dates: start: 20100921, end: 20100921

REACTIONS (5)
  - LARYNGEAL OEDEMA [None]
  - EYELID OEDEMA [None]
  - DISTURBANCE IN ATTENTION [None]
  - NASAL CONGESTION [None]
  - RASH [None]
